FAERS Safety Report 9404324 (Version 3)
Quarter: 2014Q3

REPORT INFORMATION
  Report Type: Spontaneous
  Country: US (occurrence: None)
  Receive Date: 20130715
  Receipt Date: 20140804
  Transmission Date: 20150326
  Serious: Yes (Death, Life-Threatening, Hospitalization)
  Sender: FDA-Public Use
  Company Number: 1713747-2013-99920

PATIENT
  Age: 58 Year
  Sex: Male
  Weight: 106 kg

DRUGS (6)
  1. NATURALYTE [Concomitant]
  2. FRESENIUS HEMODIALYSIS MACHINE [Concomitant]
  3. GRANUFLO [Concomitant]
  4. 0.9% SODIUM CHLORIDE [Suspect]
     Active Substance: SODIUM CHLORIDE
  5. BLOODLINES [Concomitant]
  6. DAILYZER [Concomitant]

REACTIONS (9)
  - Dizziness [None]
  - Cardiovascular disorder [None]
  - Haemodialysis [None]
  - Pulseless electrical activity [None]
  - Cardiac arrest [None]
  - Incoherent [None]
  - Ventricular tachycardia [None]
  - Unresponsive to stimuli [None]
  - Cardiogenic shock [None]

NARRATIVE: CASE EVENT DATE: 20120105
